FAERS Safety Report 17766469 (Version 2)
Quarter: 2020Q2

REPORT INFORMATION
  Report Type: Spontaneous
  Country: BR (occurrence: BR)
  Receive Date: 20200511
  Receipt Date: 20200612
  Transmission Date: 20200714
  Serious: Yes (Disabling, Other)
  Sender: FDA-Public Use
  Company Number: BR-PFIZER INC-2020186018

PATIENT
  Age: 40 Year
  Sex: Female

DRUGS (3)
  1. METHOTREXATE SODIUM. [Suspect]
     Active Substance: METHOTREXATE SODIUM
     Dosage: UNK
  2. ENBREL [Suspect]
     Active Substance: ETANERCEPT
     Dosage: UNK
     Dates: start: 202004, end: 202004
  3. ENBREL [Suspect]
     Active Substance: ETANERCEPT
     Dosage: UNK
     Dates: end: 201911

REACTIONS (11)
  - Pain in extremity [Unknown]
  - Musculoskeletal stiffness [Unknown]
  - Intentional product misuse [Unknown]
  - Asthenia [Unknown]
  - Formication [Unknown]
  - Arthralgia [Unknown]
  - Feeling abnormal [Unknown]
  - Pain [Unknown]
  - Syncope [Unknown]
  - Joint range of motion decreased [Unknown]
  - Sluggishness [Unknown]

NARRATIVE: CASE EVENT DATE: 202004
